FAERS Safety Report 6264985-3 (Version None)
Quarter: 2009Q3

REPORT INFORMATION
  Report Type: 
  Country: None (occurrence: None)
  Receive Date: 20090709
  Receipt Date: 20090709
  Transmission Date: 20100115
  Serious: Yes (Death, Hospitalization, Disabling)
  Sender: FDA-Public Use
  Company Number: None

PATIENT
  Age: 63 Year
  Sex: Female
  Weight: 66 kg

DRUGS (6)
  1. CYMBALTA [Suspect]
     Indication: ARTHRALGIA
     Dosage: 30 MG PO  ^ABOUT ONE WEEK AGO^
     Route: 048
  2. CYMBALTA [Suspect]
     Indication: DEPRESSION
     Dosage: 30 MG PO  ^ABOUT ONE WEEK AGO^
     Route: 048
  3. PRILOSEC [Concomitant]
  4. MELATONIN [Concomitant]
  5. ALEVE [Concomitant]
  6. ADVAIR DISKUS 250/50 [Concomitant]

REACTIONS (9)
  - ACUTE MYOCARDIAL INFARCTION [None]
  - ACUTE RESPIRATORY FAILURE [None]
  - CEREBROVASCULAR ACCIDENT [None]
  - CONVULSION [None]
  - EYE PAIN [None]
  - HYPOAESTHESIA ORAL [None]
  - PARAESTHESIA [None]
  - PHOTOPSIA [None]
  - UNRESPONSIVE TO STIMULI [None]
